FAERS Safety Report 9417063 (Version 1)
Quarter: 2013Q3

REPORT INFORMATION
  Report Type: Spontaneous
  Country: US (occurrence: None)
  Receive Date: 20130722
  Receipt Date: 20130722
  Transmission Date: 20140515
  Serious: Yes (Death, Hospitalization)
  Sender: FDA-Public Use
  Company Number: UTC-034934

PATIENT
  Age: 79 Year
  Sex: Female
  Weight: 84.1 kg

DRUGS (1)
  1. REMODULIN (5 MILLIGRAM/ MILLILITERS, INJECTION FOR INFUSION) (TREPROSTINIL SODIUM) [Suspect]
     Indication: COR PULMONALE CHRONIC
     Dosage: 74.88 UG/KG (0.052 UG/KG, 1 IN 1 MIN)
     Route: 042
     Dates: start: 20130401, end: 2013

REACTIONS (3)
  - Renal failure [None]
  - Anaemia [None]
  - Cardiac failure congestive [None]
